FAERS Safety Report 18275096 (Version 1)
Quarter: 2020Q3

REPORT INFORMATION
  Report Type: Spontaneous
  Country: US (occurrence: US)
  Receive Date: 20200916
  Receipt Date: 20200916
  Transmission Date: 20201103
  Serious: No
  Sender: FDA-Public Use
  Company Number: US-PFIZER INC-2020354264

PATIENT
  Age: 41 Year
  Sex: Female

DRUGS (2)
  1. VANCOMYCIN HCL [Suspect]
     Active Substance: VANCOMYCIN HYDROCHLORIDE
     Dosage: UNK
  2. HYDROCODONE\PSEUDOEPHEDRINE [Suspect]
     Active Substance: HYDROCODONE\PSEUDOEPHEDRINE
     Dosage: UNK

REACTIONS (1)
  - Drug hypersensitivity [Unknown]
